FAERS Safety Report 24870862 (Version 1)
Quarter: 2025Q1

REPORT INFORMATION
  Report Type: Spontaneous
  Country: US (occurrence: None)
  Receive Date: 20250121
  Receipt Date: 20250121
  Transmission Date: 20250408
  Serious: No
  Sender: NATCO PHARMA
  Company Number: US-NATCOUSA-2024-NATCOUSA-000244

PATIENT
  Age: 70 Year
  Sex: Female
  Weight: 71.67 kg

DRUGS (3)
  1. LETROZOLE [Suspect]
     Active Substance: LETROZOLE
     Indication: Prophylaxis
     Dosage: 2.5MG ONCE-A-DAY
     Route: 065
     Dates: start: 202402
  2. GABAPENTIN [Concomitant]
     Active Substance: GABAPENTIN
     Dosage: 300MG TWICE-A-DAY
  3. SYNTHROID [Concomitant]
     Active Substance: LEVOTHYROXINE SODIUM

REACTIONS (10)
  - Bone pain [Unknown]
  - Headache [Unknown]
  - Osteoporosis [Unknown]
  - Blood glucose increased [Unknown]
  - Blood cholesterol increased [Unknown]
  - Pain in extremity [Recovering/Resolving]
  - Neck pain [Recovering/Resolving]
  - Inappropriate schedule of product administration [Unknown]
  - Arthralgia [Unknown]
  - Gait disturbance [Unknown]
